FAERS Safety Report 24224161 (Version 1)
Quarter: 2024Q3

REPORT INFORMATION
  Report Type: Spontaneous
  Country: US (occurrence: None)
  Receive Date: 20240819
  Receipt Date: 20240819
  Transmission Date: 20241016
  Serious: No
  Sender: Public
  Company Number: None

PATIENT
  Age: 52 Year
  Sex: Female
  Weight: 83.91 kg

DRUGS (1)
  1. RINVOQ [Suspect]
     Active Substance: UPADACITINIB
     Indication: Spondyloarthropathy
     Dosage: FREQUENCY : DAILY;?
     Dates: start: 202406

REACTIONS (5)
  - COVID-19 [None]
  - Peripheral swelling [None]
  - Peripheral swelling [None]
  - Rash [None]
  - Product dose omission in error [None]
